FAERS Safety Report 8356941-6 (Version None)
Quarter: 2012Q2

REPORT INFORMATION
  Report Type: 
  Country: None (occurrence: None)
  Receive Date: 20120510
  Receipt Date: 20120503
  Transmission Date: 20120825
  Serious: Yes (Death, Life-Threatening, Hospitalization, Disabling)
  Sender: FDA-Public Use
  Company Number: 2012SP018692

PATIENT
  Age: 51 Year
  Sex: Female
  Weight: 78.0187 kg

DRUGS (2)
  1. BENICAR [Concomitant]
  2. NUVARING [Suspect]
     Indication: CONTRACEPTION
     Dosage: 1 DF;VAG
     Route: 067

REACTIONS (1)
  - PULMONARY EMBOLISM [None]
